FAERS Safety Report 10222176 (Version 2)
Quarter: 2014Q2

REPORT INFORMATION
  Report Type: Spontaneous
  Country: JP (occurrence: JP)
  Receive Date: 20140606
  Receipt Date: 20140606
  Transmission Date: 20141212
  Serious: Yes (Death)
  Sender: FDA-Public Use
  Company Number: JP-MALLINCKRODT-T201304920

PATIENT
  Age: 57 Year
  Sex: Male

DRUGS (19)
  1. METHADONE [Suspect]
     Indication: CANCER PAIN
     Dosage: 15 MG (45 MG DAILY DOSE)
     Route: 048
     Dates: start: 20131010, end: 20131024
  2. METHADONE [Suspect]
     Dosage: 10 MG (30 MG DAILY DOSE)
     Route: 048
     Dates: start: 20131025, end: 20131110
  3. METHADONE [Suspect]
     Dosage: 10 MG (20 MG DAILY DOSE)
     Route: 048
     Dates: start: 20131111, end: 20131226
  4. METHADONE [Suspect]
     Dosage: 5 MG (15 MG DAILY DOSE)
     Route: 048
     Dates: start: 20131227, end: 20131231
  5. DICLOFENAC SODIUM [Concomitant]
     Dosage: 75 MG, UNK
     Route: 048
     Dates: end: 20131231
  6. MYSLEE [Concomitant]
     Dosage: 10 MG, UNK
     Route: 048
     Dates: start: 20131004, end: 20131016
  7. OMEPRAZOLE [Concomitant]
     Dosage: 20 MG, UNK
     Route: 048
     Dates: start: 20131004, end: 20131231
  8. LYRICA [Concomitant]
     Dosage: 25 MG, UNK
     Route: 048
     Dates: start: 20131004, end: 20131231
  9. PREDONINE [Concomitant]
     Dosage: 5 MG, UNK
     Route: 048
     Dates: start: 20131004, end: 20131106
  10. GASMOTIN [Concomitant]
     Dosage: 15 MG, UNK
     Route: 048
     Dates: start: 20131011, end: 20131231
  11. ZOLOFT [Concomitant]
     Dosage: 25 MG, UNK
     Route: 048
     Dates: start: 20131015, end: 20131230
  12. DOMPERIDONE [Concomitant]
     Dosage: 30 MG, UNK
     Route: 048
     Dates: start: 20131008, end: 20131011
  13. MILMAG [Concomitant]
     Dosage: 15 ML, UNK
     Route: 048
     Dates: start: 20131004, end: 20131113
  14. LAXOBERON [Concomitant]
     Dosage: 15 GTT, UNK
     Route: 048
     Dates: start: 20131004, end: 20131231
  15. DRAMAMINE [Concomitant]
     Dosage: 150 MG, UNK
     Route: 048
     Dates: start: 20131105, end: 20131231
  16. HICORT [Concomitant]
     Dosage: 2 MG, UNK
     Route: 051
     Dates: start: 20131107, end: 20131112
  17. RINDERON [Concomitant]
     Dosage: 2 MG, UNK
     Route: 048
     Dates: start: 20131113, end: 20131230
  18. RINDERON [Concomitant]
     Dosage: 3 MG
     Route: 048
     Dates: start: 20131231, end: 20131231
  19. MAGLAX [Concomitant]
     Dosage: 990 MG, UNK
     Route: 048
     Dates: start: 20131114, end: 20131231

REACTIONS (3)
  - Rectal cancer [Fatal]
  - Somnolence [Recovering/Resolving]
  - Nausea [Recovering/Resolving]
